FAERS Safety Report 19481056 (Version 1)
Quarter: 2021Q3

REPORT INFORMATION
  Report Type: Report from Study
  Country: BG (occurrence: BG)
  Receive Date: 20210701
  Receipt Date: 20210701
  Transmission Date: 20211014
  Serious: Yes (Death)
  Sender: FDA-Public Use
  Company Number: BG-AMGEN-BGRNI2021099677

PATIENT

DRUGS (3)
  1. PERTUZUMAB. [Suspect]
     Active Substance: PERTUZUMAB
     Indication: BREAST CANCER
     Dosage: 420 MILLIGRAM, 2 WEEK (420 MILLIGRAM, Q3W ? EVERY 3 WEEKS)
     Route: 042
     Dates: start: 20181121
  2. TAXOTERE [Suspect]
     Active Substance: DOCETAXEL
     Indication: BREAST CANCER
     Dosage: 160 MILLIGRAM, 2 WEEK (160 MILLIGRAM, Q3W ? EVERY 3 WEEKS)
     Route: 042
     Dates: start: 20181121
  3. TRASTUZUMAB. [Suspect]
     Active Substance: TRASTUZUMAB
     Indication: BREAST CANCER
     Dosage: 450 MILLIGRAM, 2 WEEK (450 MILLIGRAM, Q3W ? EVERY 3 WEEKS)
     Route: 041
     Dates: start: 20181121

REACTIONS (1)
  - Pulmonary embolism [Fatal]

NARRATIVE: CASE EVENT DATE: 20190110
